FAERS Safety Report 15632776 (Version 1)
Quarter: 2018Q4

REPORT INFORMATION
  Report Type: Spontaneous
  Country: BR (occurrence: BR)
  Receive Date: 20181119
  Receipt Date: 20181119
  Transmission Date: 20190205
  Serious: Yes (Hospitalization)
  Sender: FDA-Public Use
  Company Number: BR-SA-2018SA316847

PATIENT
  Age: 6 Year
  Sex: Female
  Weight: 31 kg

DRUGS (5)
  1. LEVOCETIRIZINE [Suspect]
     Active Substance: LEVOCETIRIZINE
     Indication: URTICARIA CHRONIC
     Dosage: 15 DROP, BID
     Route: 065
     Dates: start: 2016
  2. PREDNISOLONE. [Concomitant]
     Active Substance: PREDNISOLONE
     Dosage: 10ML IN THE MORNING AND 10 AT NIGHT
  3. HYDROXYZINE HYDROCHLORIDE. [Concomitant]
     Active Substance: HYDROXYZINE HYDROCHLORIDE
     Dosage: 10ML IN THE MORNING AND 10 AT NIGHT
  4. RANITIDINE. [Concomitant]
     Active Substance: RANITIDINE
     Dosage: UNK
     Dates: start: 201810, end: 201810
  5. LEVOCETIRIZINE [Suspect]
     Active Substance: LEVOCETIRIZINE
     Dosage: 20 DROPS IN THE MORNING AND 20 DROPS IN THE NIGHT
     Route: 065
     Dates: start: 201805

REACTIONS (4)
  - Performance status decreased [Unknown]
  - Mouth swelling [Unknown]
  - Skin plaque [Recovered/Resolved]
  - Peripheral swelling [Unknown]

NARRATIVE: CASE EVENT DATE: 2018
